FAERS Safety Report 9813438 (Version 1)
Quarter: 2014Q1

REPORT INFORMATION
  Report Type: Spontaneous
  Country: US (occurrence: None)
  Receive Date: 20140109
  Receipt Date: 20140109
  Transmission Date: 20141002
  Serious: Yes (Other)
  Sender: FDA-Public Use
  Company Number: DAV-AE-MTX-13-71

PATIENT
  Age: 57 Year
  Sex: Female

DRUGS (2)
  1. METHOTREXATE [Suspect]
     Indication: RHEUMATOID ARTHRITIS
     Dosage: 15 MG, PER WEEK, PO
     Route: 048
  2. ADALIMUMAB 40 MG [Concomitant]

REACTIONS (9)
  - Neurotoxicity [None]
  - Headache [None]
  - Dysphemia [None]
  - Paraesthesia [None]
  - Dyspnoea [None]
  - Tremor [None]
  - Bronchitis [None]
  - CSF protein increased [None]
  - Synovial fluid red blood cells positive [None]
